FAERS Safety Report 9281724 (Version 2)
Quarter: 2013Q2

REPORT INFORMATION
  Report Type: Spontaneous
  Country: US (occurrence: US)
  Receive Date: 20130510
  Receipt Date: 20130515
  Transmission Date: 20140414
  Serious: Yes (Death)
  Sender: FDA-Public Use
  Company Number: US-B.I. PHARMACEUTICALS,INC./RIDGEFIELD-2013-BI-12658BP

PATIENT
  Age: 88 Year
  Sex: Female

DRUGS (1)
  1. PRADAXA [Suspect]
     Dates: end: 201304

REACTIONS (2)
  - Embolic stroke [Fatal]
  - Gastrointestinal haemorrhage [Unknown]
